FAERS Safety Report 5302076-6 (Version None)
Quarter: 2007Q2

REPORT INFORMATION
  Report Type: 
  Country: None (occurrence: None)
  Receive Date: 20070419
  Receipt Date: 20070411
  Transmission Date: 20071010
  Serious: Yes (Other)
  Sender: FDA-Public Use
  Company Number: US-GLAXOSMITHKLINE-A0642332A

PATIENT
  Age: 47 Year
  Sex: Female
  Weight: 84.5 kg

DRUGS (3)
  1. LAPATINIB [Suspect]
     Indication: BREAST CANCER METASTATIC
     Dosage: 1000MG PER DAY
     Route: 048
     Dates: start: 20060707
  2. PACLITAXEL [Suspect]
     Indication: BREAST CANCER METASTATIC
     Dosage: 80MGM2 CYCLIC
     Route: 042
     Dates: start: 20060707
  3. TRASTUZUMAB [Suspect]
     Indication: BREAST CANCER METASTATIC
     Dosage: 4MGK WEEKLY
     Route: 042
     Dates: start: 20060707

REACTIONS (1)
  - VENTRICULAR DYSFUNCTION [None]
